FAERS Safety Report 13333915 (Version 8)
Quarter: 2017Q3

REPORT INFORMATION
  Report Type: Spontaneous
  Country: US (occurrence: US)
  Receive Date: 20170314
  Receipt Date: 20170908
  Transmission Date: 20171127
  Serious: Yes (Hospitalization, Other)
  Sender: FDA-Public Use
  Company Number: US-PFIZER INC-2017100946

PATIENT
  Age: 72 Year
  Sex: Male
  Weight: 68 kg

DRUGS (4)
  1. SIMVASTATIN. [Concomitant]
     Active Substance: SIMVASTATIN
     Indication: BLOOD CHOLESTEROL ABNORMAL
     Dosage: 40 MG, UNK
  2. SUTENT [Suspect]
     Active Substance: SUNITINIB MALATE
     Indication: RENAL CANCER METASTATIC
     Dosage: 50 MG, CYCLIC (28 DAYS ON/14 DAYS OFF)
     Dates: start: 20170206
  3. NIACIN. [Concomitant]
     Active Substance: NIACIN
     Dosage: UNK
  4. ASPIRIN. [Concomitant]
     Active Substance: ASPIRIN
     Dosage: UNK

REACTIONS (18)
  - Dehydration [Recovered/Resolved]
  - Oral pain [Recovered/Resolved]
  - Laceration [Recovered/Resolved]
  - Pain in extremity [Not Recovered/Not Resolved]
  - Muscle spasms [Unknown]
  - Weight increased [Unknown]
  - Tenderness [Not Recovered/Not Resolved]
  - Loss of consciousness [Recovered/Resolved]
  - Dysgeusia [Not Recovered/Not Resolved]
  - Anaemia [Unknown]
  - Skin exfoliation [Recovering/Resolving]
  - Musculoskeletal pain [Recovered/Resolved]
  - Gait disturbance [Recovering/Resolving]
  - Blood pressure increased [Recovering/Resolving]
  - Skin disorder [Not Recovered/Not Resolved]
  - Fall [Recovered/Resolved]
  - Head injury [Not Recovered/Not Resolved]
  - Blister [Unknown]

NARRATIVE: CASE EVENT DATE: 20170226
